FAERS Safety Report 4786843-3 (Version None)
Quarter: 2005Q3

REPORT INFORMATION
  Report Type: 
  Country: None (occurrence: None)
  Receive Date: 20050930
  Receipt Date: 20050920
  Transmission Date: 20060218
  Serious: Yes (Disabling, Other)
  Sender: FDA-Public Use
  Company Number: SUS1-2005-00657

PATIENT
  Age: 6 Year
  Sex: Male

DRUGS (1)
  1. ADDERALL 10 [Suspect]
     Dosage: 10 MG OR 20 MG DAILY
     Dates: start: 20050825, end: 20050826

REACTIONS (6)
  - ABNORMAL BEHAVIOUR [None]
  - HOMICIDAL IDEATION [None]
  - INSOMNIA [None]
  - PARANOIA [None]
  - PSYCHOTIC DISORDER [None]
  - THINKING ABNORMAL [None]
